FAERS Safety Report 7222777-2 (Version None)
Quarter: 2011Q1

REPORT INFORMATION
  Report Type: 
  Country: None (occurrence: None)
  Receive Date: 20110106
  Receipt Date: 20110106
  Transmission Date: 20110831
  Serious: Yes (Hospitalization)
  Sender: FDA-Public Use
  Company Number: None

PATIENT
  Age: 40 Year
  Sex: Female
  Weight: 112.4 kg

DRUGS (8)
  1. DILAUDID [Concomitant]
  2. VANCOMYCIN [Suspect]
     Indication: STAPHYLOCOCCAL INFECTION
     Dosage: 1.75GMS Q12HR IV
     Route: 042
     Dates: start: 20101008, end: 20101017
  3. KLONOPIN [Concomitant]
  4. FLEXERIL [Concomitant]
  5. SYNTHROID [Concomitant]
  6. GABAPENTIN [Concomitant]
  7. DEPO-PROVERA [Concomitant]
  8. LAMICTAL [Concomitant]

REACTIONS (1)
  - RASH [None]
